FAERS Safety Report 4494462-1 (Version None)
Quarter: 2004Q4

REPORT INFORMATION
  Report Type: 
  Country: None (occurrence: None)
  Receive Date: 20041102
  Receipt Date: 20041020
  Transmission Date: 20050328
  Serious: Yes (Hospitalization, Other)
  Sender: FDA-Public Use
  Company Number: 2004240799CA

PATIENT
  Age: 74 Year
  Sex: Male

DRUGS (6)
  1. CELEBREX [Suspect]
     Indication: ARTHRITIS
     Dosage: ORAL
     Route: 048
     Dates: start: 19990101
  2. COVERSYL (PERINDOPRIL) TABLET [Suspect]
     Dosage: ORAL
     Route: 048
     Dates: end: 20040101
  3. HYDROXYZINE [Concomitant]
  4. NOVASEN [Concomitant]
  5. PANTOLOC         ^BYK MADAUS^ [Concomitant]
  6. SOTALOL HCL [Concomitant]

REACTIONS (5)
  - AORTIC OCCLUSION [None]
  - BLOOD PRESSURE INCREASED [None]
  - CHEST PAIN [None]
  - HYPERSENSITIVITY [None]
  - THROAT TIGHTNESS [None]
